FAERS Safety Report 4771134-7 (Version None)
Quarter: 2005Q3

REPORT INFORMATION
  Report Type: 
  Country: None (occurrence: None)
  Receive Date: 20050914
  Receipt Date: 20050903
  Transmission Date: 20060218
  Serious: Yes (Other)
  Sender: FDA-Public Use
  Company Number: 2005098827

PATIENT
  Age: 51 Year
  Sex: Female
  Weight: 63.5036 kg

DRUGS (6)
  1. LIPITOR [Suspect]
     Indication: DRUG ADMINISTRATION ERROR
     Dosage: 80 MG (40 MG, 2 IN 1 D), ORAL
     Route: 048
     Dates: start: 20041201, end: 20050101
  2. NEURONTIN [Suspect]
     Indication: ILL-DEFINED DISORDER
     Dates: end: 20050301
  3. GLUCOTROL [Concomitant]
  4. GLUCOPHAGE XR (METFORMIN HYDROCHLORIDE) [Concomitant]
  5. METOPROLOL TARTRATE [Concomitant]
  6. CAPTOPRIL [Concomitant]

REACTIONS (9)
  - ASTHENIA [None]
  - DIZZINESS [None]
  - DRUG DISPENSING ERROR [None]
  - GALLBLADDER OPERATION [None]
  - HERNIA [None]
  - LOSS OF CONSCIOUSNESS [None]
  - MALAISE [None]
  - NAUSEA [None]
  - WRONG DRUG ADMINISTERED [None]
